FAERS Safety Report 10673778 (Version 2)
Quarter: 2015Q2

REPORT INFORMATION
  Report Type: Spontaneous
  Country: US (occurrence: None)
  Receive Date: 20141222
  Receipt Date: 20150428
  Transmission Date: 20150821
  Serious: Yes (Other)
  Sender: FDA-Public Use
  Company Number: 2014VER00352

PATIENT
  Age: 15 Year
  Sex: Female

DRUGS (2)
  1. CLARAVIS [Suspect]
     Active Substance: ISOTRETINOIN
  2. MYORISAN [Suspect]
     Active Substance: ISOTRETINOIN

REACTIONS (2)
  - Decreased appetite [None]
  - Depression [None]
